FAERS Safety Report 4395178-2 (Version None)
Quarter: 2004Q3

REPORT INFORMATION
  Report Type: 
  Country: None (occurrence: None)
  Receive Date: 20040706
  Receipt Date: 20040621
  Transmission Date: 20050211
  Serious: Yes (Other)
  Sender: FDA-Public Use
  Company Number: FLX20040002

PATIENT
  Age: 81 Year
  Sex: Female

DRUGS (7)
  1. FLUOXETINE [Suspect]
     Indication: ANXIETY
     Dosage: 20 MG DAILY PO
     Route: 048
  2. FLUOXETINE [Suspect]
     Indication: DEPRESSION
     Dosage: 20 MG DAILY PO
     Route: 048
  3. HYDROMORPHONE HCL [Suspect]
     Indication: SPINAL FRACTURE
     Dosage: 12 MG DAILY PO
     Route: 048
     Dates: start: 20020401
  4. LISINOPRIL [Concomitant]
  5. HYDROXYZINE [Concomitant]
  6. PENTOXIFYLLINE [Concomitant]
  7. MONTELUKAST [Concomitant]

REACTIONS (5)
  - DRUG INTERACTION POTENTIATION [None]
  - INTERVERTEBRAL DISC DISORDER [None]
  - PAIN [None]
  - SEROTONIN SYNDROME [None]
  - SPINAL FRACTURE [None]
